FAERS Safety Report 21249719 (Version 1)
Quarter: 2022Q3

REPORT INFORMATION
  Report Type: Spontaneous
  Country: US (occurrence: None)
  Receive Date: 20220824
  Receipt Date: 20220824
  Transmission Date: 20221027
  Serious: Yes (Other)
  Sender: FDA-Public Use
  Company Number: None

PATIENT
  Age: 65 Year
  Sex: Female
  Weight: 80.74 kg

DRUGS (13)
  1. HUMIRA [Suspect]
     Active Substance: ADALIMUMAB
     Indication: Rheumatoid arthritis
     Dosage: FREQUENCY : EVERY OTHER WEEK;?
     Dates: start: 20220420, end: 20220713
  2. LOSARTAN [Concomitant]
     Active Substance: LOSARTAN
  3. AMCLODIPINE BESYLATE [Concomitant]
  4. SULFAMETHOXAZOLE\TRIMETHOPRIM [Concomitant]
     Active Substance: SULFAMETHOXAZOLE\TRIMETHOPRIM
  5. ATORVASTATIN [Concomitant]
     Active Substance: ATORVASTATIN
  6. PREDNISONE [Concomitant]
     Active Substance: PREDNISONE
  7. TRAMADOL [Concomitant]
     Active Substance: TRAMADOL
  8. DOCUSATE SODIUM [Concomitant]
     Active Substance: DOCUSATE SODIUM
  9. CEVIMELINE [Concomitant]
     Active Substance: CEVIMELINE
  10. HYDROCHLOROTHIAZIDE [Concomitant]
     Active Substance: HYDROCHLOROTHIAZIDE
  11. ALBUTEROL [Concomitant]
     Active Substance: ALBUTEROL
  12. DICLOFENAC [Concomitant]
     Active Substance: DICLOFENAC
  13. FLUTICASONE [Concomitant]
     Active Substance: FLUTICASONE

REACTIONS (2)
  - Deafness unilateral [None]
  - Deafness neurosensory [None]

NARRATIVE: CASE EVENT DATE: 20220713
